FAERS Safety Report 14217183 (Version 1)
Quarter: 2017Q4

REPORT INFORMATION
  Report Type: Spontaneous
  Country: IN (occurrence: IN)
  Receive Date: 20171122
  Receipt Date: 20171122
  Transmission Date: 20180321
  Serious: No
  Sender: FDA-Public Use
  Company Number: IN-LUPIN PHARMACEUTICALS INC.-E2B_00007180

PATIENT
  Age: 67 Year
  Sex: Female

DRUGS (2)
  1. GLUCONORM (METFORMIN HYDROCHLORIDE) [Suspect]
     Active Substance: METFORMIN HYDROCHLORIDE
     Dosage: .5 DF,QD,
     Route: 048
     Dates: start: 2011
  2. VOGLITOR MF [Concomitant]
     Indication: DIABETES MELLITUS
     Dosage: 1 DF,BID,
     Route: 048
     Dates: start: 2011

REACTIONS (2)
  - Wrong technique in product usage process [Unknown]
  - No adverse event [Unknown]

NARRATIVE: CASE EVENT DATE: 20170107
